FAERS Safety Report 6369993-X (Version None)
Quarter: 2009Q3

REPORT INFORMATION
  Report Type: 
  Country: None (occurrence: None)
  Receive Date: 20090923
  Receipt Date: 20070611
  Transmission Date: 20100115
  Serious: Yes (Hospitalization)
  Sender: FDA-Public Use
  Company Number: US-ASTRAZENECA-2006UW08041

PATIENT
  Age: 32 Year
  Sex: Male
  Weight: 90.7 kg

DRUGS (20)
  1. SEROQUEL [Suspect]
     Indication: DEPRESSION
     Route: 048
     Dates: end: 20040202
  2. SEROQUEL [Suspect]
     Route: 048
     Dates: start: 20050317
  3. TRAZODONE [Concomitant]
     Dosage: 150MG
     Route: 065
     Dates: start: 19970101
  4. LAMICTAL [Concomitant]
     Dosage: 100 MG
     Route: 065
     Dates: start: 19970101
  5. TOPAMAX [Concomitant]
     Dosage: 100 MG
     Route: 065
  6. GLUCOPHAGE [Concomitant]
     Route: 065
  7. DIOVAN HCT [Concomitant]
     Dosage: 12.5-160 MG
     Route: 065
  8. TOPROL-XL [Concomitant]
     Route: 065
  9. ZOCOR [Concomitant]
     Route: 065
  10. VYTORIN [Concomitant]
     Dosage: 10-40MG
     Route: 065
  11. ACTOS [Concomitant]
     Route: 065
  12. WELLBUTRIN [Concomitant]
     Route: 065
  13. TEMAZEPAM [Concomitant]
     Route: 065
  14. AMITRIPTYLINE [Concomitant]
     Dosage: 50-150MG
     Route: 065
  15. AVALIDE [Concomitant]
     Route: 065
  16. PRAVACHOL [Concomitant]
     Route: 065
  17. AVAPRO [Concomitant]
     Route: 065
  18. ZANTAC [Concomitant]
     Route: 065
  19. PREDNISONE TAB [Concomitant]
     Route: 065
  20. KEFLEX [Concomitant]
     Route: 065

REACTIONS (10)
  - ANGIOEDEMA [None]
  - CONJUNCTIVITIS [None]
  - DEPRESSION [None]
  - DIABETES MELLITUS [None]
  - HYPERTENSION [None]
  - INFLUENZA [None]
  - LARYNGITIS [None]
  - MULTIPLE ALLERGIES [None]
  - PHARYNGITIS [None]
  - TRIGGER FINGER [None]
